FAERS Safety Report 25194701 (Version 1)
Quarter: 2025Q2

REPORT INFORMATION
  Report Type: Report from Study
  Country: US (occurrence: US)
  Receive Date: 20250414
  Receipt Date: 20250414
  Transmission Date: 20250716
  Serious: Yes (Hospitalization)
  Sender: ABBVIE
  Company Number: US-ABBVIE-6221525

PATIENT
  Age: 64 Year
  Sex: Female

DRUGS (1)
  1. RINVOQ [Suspect]
     Active Substance: UPADACITINIB
     Indication: Colitis ulcerative
     Route: 048
     Dates: start: 20241101

REACTIONS (6)
  - Gait inability [Unknown]
  - Haemoglobin abnormal [Recovered/Resolved]
  - Spinal fracture [Recovering/Resolving]
  - Wheelchair user [Unknown]
  - Walking aid user [Unknown]
  - Colitis ulcerative [Recovering/Resolving]
